FAERS Safety Report 25192300 (Version 1)
Quarter: 2025Q2

REPORT INFORMATION
  Report Type: Spontaneous
  Country: CN (occurrence: CN)
  Receive Date: 20250414
  Receipt Date: 20250414
  Transmission Date: 20250717
  Serious: Yes (Hospitalization)
  Sender: MYLAN
  Company Number: CN-MYLANLABS-2025M1031271

PATIENT
  Age: 54 Year
  Sex: Female
  Weight: 82 kg

DRUGS (8)
  1. LIPITOR [Suspect]
     Active Substance: ATORVASTATIN CALCIUM
     Indication: Hyperlipidaemia
     Dosage: 1 DOSAGE FORM, QD
     Dates: start: 20250317, end: 20250329
  2. LIPITOR [Suspect]
     Active Substance: ATORVASTATIN CALCIUM
     Dosage: 1 DOSAGE FORM, QD
     Route: 048
     Dates: start: 20250317, end: 20250329
  3. LIPITOR [Suspect]
     Active Substance: ATORVASTATIN CALCIUM
     Dosage: 1 DOSAGE FORM, QD
     Route: 048
     Dates: start: 20250317, end: 20250329
  4. LIPITOR [Suspect]
     Active Substance: ATORVASTATIN CALCIUM
     Dosage: 1 DOSAGE FORM, QD
     Dates: start: 20250317, end: 20250329
  5. FENOFIBRATE [Suspect]
     Active Substance: FENOFIBRATE
     Indication: Hyperlipidaemia
     Dosage: 1 DOSAGE FORM, TID
     Dates: start: 20250317, end: 20250329
  6. FENOFIBRATE [Suspect]
     Active Substance: FENOFIBRATE
     Dosage: 1 DOSAGE FORM, TID
     Route: 048
     Dates: start: 20250317, end: 20250329
  7. FENOFIBRATE [Suspect]
     Active Substance: FENOFIBRATE
     Dosage: 1 DOSAGE FORM, TID
     Route: 048
     Dates: start: 20250317, end: 20250329
  8. FENOFIBRATE [Suspect]
     Active Substance: FENOFIBRATE
     Dosage: 1 DOSAGE FORM, TID
     Dates: start: 20250317, end: 20250329

REACTIONS (3)
  - Pruritus [Recovering/Resolving]
  - Erythema [Recovering/Resolving]
  - Urticaria [Recovering/Resolving]

NARRATIVE: CASE EVENT DATE: 20250329
